FAERS Safety Report 6060931-6 (Version None)
Quarter: 2009Q1

REPORT INFORMATION
  Report Type: 
  Country: None (occurrence: None)
  Receive Date: 20090202
  Receipt Date: 20090120
  Transmission Date: 20090719
  Serious: Yes (Hospitalization, Other)
  Sender: FDA-Public Use
  Company Number: US-ROCHE-580981

PATIENT
  Sex: Female
  Weight: 94.8 kg

DRUGS (5)
  1. PEGASYS [Suspect]
     Dosage: FORM: PRE-FILLED SYRINGE PATIENT IN WEEK 25
     Route: 058
     Dates: start: 20080803
  2. RIBASPHERE [Suspect]
     Dosage: PATIENT IN WEEK 25
     Route: 048
     Dates: start: 20080803
  3. NEXIUM [Concomitant]
     Route: 048
     Dates: start: 20080103
  4. ZOLOFT [Concomitant]
     Dosage: TAKEN AT NIGHT
     Route: 048
  5. NORVASC [Concomitant]
     Indication: HYPERTENSION
     Route: 048

REACTIONS (25)
  - ANOREXIA [None]
  - ASTHENIA [None]
  - BALANCE DISORDER [None]
  - CHROMATURIA [None]
  - COLD SWEAT [None]
  - CONSTIPATION [None]
  - CRYING [None]
  - DARK CIRCLES UNDER EYES [None]
  - DEPRESSION [None]
  - DIZZINESS [None]
  - EAR INFECTION [None]
  - FATIGUE [None]
  - HAEMATOCRIT DECREASED [None]
  - HAEMOGLOBIN DECREASED [None]
  - HEPATIC ENZYME INCREASED [None]
  - INCREASED TENDENCY TO BRUISE [None]
  - IRRITABILITY [None]
  - MENIERE'S DISEASE [None]
  - NASOPHARYNGITIS [None]
  - NAUSEA [None]
  - PALLOR [None]
  - SINUSITIS [None]
  - TREMOR [None]
  - WEIGHT DECREASED [None]
  - WHITE BLOOD CELL COUNT DECREASED [None]
